FAERS Safety Report 14495329 (Version 1)
Quarter: 2018Q1

REPORT INFORMATION
  Report Type: Spontaneous
  Country: US (occurrence: US)
  Receive Date: 20180206
  Receipt Date: 20180206
  Transmission Date: 20180509
  Serious: No
  Sender: FDA-Public Use
  Company Number: US-SMITH AND NEPHEW, INC-2017SMT00522

PATIENT
  Age: 58 Year
  Sex: Female
  Weight: 108.84 kg

DRUGS (2)
  1. REGRANEX [Suspect]
     Active Substance: BECAPLERMIN
     Indication: PLANTAR FASCIAL FIBROMATOSIS
  2. REGRANEX [Suspect]
     Active Substance: BECAPLERMIN
     Indication: WOUND
     Dosage: UNK, 1X/DAY ON FOR 12 HOURS AND OFF FOR 12 HOURS
     Route: 061
     Dates: start: 201707, end: 201707

REACTIONS (2)
  - Peripheral swelling [Recovered/Resolved]
  - Off label use [Recovered/Resolved]

NARRATIVE: CASE EVENT DATE: 201707
